FAERS Safety Report 25758543 (Version 3)
Quarter: 2025Q4

REPORT INFORMATION
  Report Type: Report from Study
  Country: US (occurrence: US)
  Receive Date: 20250904
  Receipt Date: 20251015
  Transmission Date: 20260119
  Serious: Yes (Other)
  Sender: JOHNSON AND JOHNSON
  Company Number: US-JNJFOC-20250831940

PATIENT
  Age: 35 Year
  Sex: Female

DRUGS (2)
  1. TREMFYA [Suspect]
     Active Substance: GUSELKUMAB
     Indication: Crohn^s disease
     Dosage: STRENGTH 200.00 MG / 2.00 ML
     Route: 058
     Dates: start: 20250724
  2. TREMFYA [Suspect]
     Active Substance: GUSELKUMAB
     Dosage: STRENGTH 200.00 MG / 2.00 ML
     Route: 058
     Dates: start: 20250825

REACTIONS (7)
  - Crohn^s disease [Unknown]
  - Injection site bruising [Unknown]
  - Device leakage [Unknown]
  - Device difficult to use [Unknown]
  - Device defective [Unknown]
  - Incorrect dose administered by product [Unknown]
  - Injection site pain [Unknown]

NARRATIVE: CASE EVENT DATE: 20250701
